FAERS Safety Report 5816284-9 (Version None)
Quarter: 2008Q3

REPORT INFORMATION
  Report Type: 
  Country: None (occurrence: None)
  Receive Date: 20080717
  Receipt Date: 20080717
  Transmission Date: 20090109
  Serious: Yes (Other)
  Sender: FDA-Public Use
  Company Number: None

PATIENT
  Age: 51 Year
  Sex: Female
  Weight: 77.1115 kg

DRUGS (2)
  1. NO-AD SPF 60, 2005 SOLAR COSMETIC LABS, INC. [Suspect]
     Indication: PROPHYLAXIS
     Dosage: SPF 60 DAILY TOPICAL
     Dates: start: 20040601, end: 20080601
  2. NO-AD SPF 60, 2005 SOLAR COSMETIC LABS, INC. [Suspect]
     Indication: SUNBURN
     Dosage: SPF 60 DAILY TOPICAL
     Dates: start: 20040601, end: 20080601

REACTIONS (1)
  - MULTIPLE MYELOMA [None]
